FAERS Safety Report 23563349 (Version 3)
Quarter: 2025Q4

REPORT INFORMATION
  Report Type: Spontaneous
  Country: US (occurrence: US)
  Receive Date: 20240226
  Receipt Date: 20251120
  Transmission Date: 20260117
  Serious: No
  Sender: SANOFI AVENTIS
  Company Number: US-SA-SAC20240222000054

PATIENT
  Age: 80 Year
  Sex: Male
  Weight: 85.45 kg

DRUGS (2)
  1. DUPIXENT [Suspect]
     Active Substance: DUPILUMAB
     Indication: Dermatitis atopic
     Dosage: 300 MG, QOW
     Route: 058
  2. DUPIXENT [Suspect]
     Active Substance: DUPILUMAB
     Indication: Neoplasm skin

REACTIONS (4)
  - Pruritus [Unknown]
  - Eye pruritus [Unknown]
  - Product prescribing issue [Unknown]
  - Product use in unapproved indication [Unknown]
